FAERS Safety Report 14401332 (Version 1)
Quarter: 2018Q1

REPORT INFORMATION
  Report Type: Spontaneous
  Country: US (occurrence: US)
  Receive Date: 20180115
  Receipt Date: 20180115
  Transmission Date: 20180509
  Serious: Yes (Hospitalization)
  Sender: FDA-Public Use
  Company Number: None

PATIENT
  Sex: Male

DRUGS (7)
  1. COSENTYX [Suspect]
     Active Substance: SECUKINUMAB
     Indication: PSORIASIS
     Route: 058
     Dates: start: 20170623
  2. HAWTHORN CAP [Concomitant]
  3. GLIPIZIDE. [Concomitant]
     Active Substance: GLIPIZIDE
  4. CALCIPOTREIN [Concomitant]
  5. PROBIOTIC [Concomitant]
     Active Substance: PROBIOTICS NOS
  6. HCTZ [Concomitant]
     Active Substance: HYDROCHLOROTHIAZIDE
  7. LISINOPRIL. [Concomitant]
     Active Substance: LISINOPRIL

REACTIONS (2)
  - Neoplasm malignant [None]
  - Therapy cessation [None]
